FAERS Safety Report 11386867 (Version 1)
Quarter: 2015Q3

REPORT INFORMATION
  Report Type: Spontaneous
  Country: US (occurrence: None)
  Receive Date: 20150814
  Receipt Date: 20150814
  Transmission Date: 20151125
  Serious: Yes (Hospitalization)
  Sender: FDA-Public Use
  Company Number: None

PATIENT
  Age: 72 Year
  Sex: Female
  Weight: 104.9 kg

DRUGS (21)
  1. DEXAPRO [Concomitant]
  2. ULORIC [Concomitant]
     Active Substance: FEBUXOSTAT
  3. CHRONULAC [Concomitant]
     Active Substance: LACTULOSE
  4. SYNTHROID [Concomitant]
     Active Substance: LEVOTHYROXINE SODIUM
  5. SYMBICORT [Concomitant]
     Active Substance: BUDESONIDE\FORMOTEROL FUMARATE DIHYDRATE
  6. COREG [Concomitant]
     Active Substance: CARVEDILOL
  7. ALLEGRA [Concomitant]
     Active Substance: FEXOFENADINE HYDROCHLORIDE
  8. ALDACTONE [Concomitant]
     Active Substance: SPIRONOLACTONE
  9. XOPENEX [Concomitant]
     Active Substance: LEVALBUTEROL HYDROCHLORIDE
  10. NAFTIN [Concomitant]
     Active Substance: NAFTIFINE HYDROCHLORIDE
  11. DEMADEX [Concomitant]
     Active Substance: TORSEMIDE
  12. VIT B [Concomitant]
     Active Substance: VITAMINS
  13. ZYRTEC [Concomitant]
     Active Substance: CETIRIZINE HYDROCHLORIDE
  14. VITAMIN D3 [Concomitant]
     Active Substance: CHOLECALCIFEROL
  15. ZAROXOLYN [Concomitant]
     Active Substance: METOLAZONE
  16. PRILOSEC [Concomitant]
     Active Substance: OMEPRAZOLE MAGNESIUM
  17. XIFAXAN [Concomitant]
     Active Substance: RIFAXIMIN
  18. IBUPROFEN. [Suspect]
     Active Substance: IBUPROFEN
     Indication: PAIN
     Route: 048
  19. TESSALON [Suspect]
     Active Substance: BENZONATATE
  20. NEURONTIN [Concomitant]
     Active Substance: GABAPENTIN
  21. REQUIP [Concomitant]
     Active Substance: ROPINIROLE HYDROCHLORIDE

REACTIONS (3)
  - Incorrect drug administration duration [None]
  - Acute kidney injury [None]
  - Lower gastrointestinal haemorrhage [None]

NARRATIVE: CASE EVENT DATE: 20150201
